FAERS Safety Report 5504772-4 (Version None)
Quarter: 2007Q4

REPORT INFORMATION
  Report Type: 
  Country: None (occurrence: None)
  Receive Date: 20071031
  Receipt Date: 20071031
  Transmission Date: 20080405
  Serious: No
  Sender: FDA-Public Use
  Company Number: None

PATIENT
  Sex: Female

DRUGS (2)
  1. FLUTICASONE PROPIONATE [Suspect]
     Indication: ASTHMA
     Dosage: 50 MCG, 2 PUFFS QID NASAL
     Route: 045
     Dates: start: 20060101
  2. FLUTICASONE PROPIONATE [Suspect]
     Indication: ASTHMA
     Dosage: 50 MCG, 2 PUFFS QID NASAL
     Route: 045
     Dates: start: 20070101

REACTIONS (3)
  - EPISTAXIS [None]
  - NAUSEA [None]
  - STOMACH DISCOMFORT [None]
